FAERS Safety Report 5929120-7 (Version None)
Quarter: 2008Q4

REPORT INFORMATION
  Report Type: 
  Country: None (occurrence: None)
  Receive Date: 20081023
  Receipt Date: 20081023
  Transmission Date: 20090506
  Serious: Yes (Hospitalization)
  Sender: FDA-Public Use
  Company Number: None

PATIENT
  Sex: Female
  Weight: 65.7716 kg

DRUGS (1)
  1. TRAMADOL HCL [Suspect]
     Indication: PAIN IN EXTREMITY
     Dosage: 50 MG 4XS DAILY PO
     Route: 048
     Dates: start: 20020206, end: 20071128

REACTIONS (2)
  - DRUG DEPENDENCE [None]
  - DRUG WITHDRAWAL SYNDROME [None]
